FAERS Safety Report 11254051 (Version 1)
Quarter: 2015Q3

REPORT INFORMATION
  Report Type: Spontaneous
  Country: US (occurrence: US)
  Receive Date: 20150709
  Receipt Date: 20150709
  Transmission Date: 20151125
  Serious: No
  Sender: FDA-Public Use
  Company Number: US-MYLANLABS-2015M1015906

PATIENT
  Age: 55 Year
  Sex: Female

DRUGS (2)
  1. QUININE SULFATE. [Suspect]
     Active Substance: QUININE SULFATE
     Indication: MUSCLE SPASMS
     Dosage: 324 MG, TID
     Route: 048
  2. QUININE SULFATE. [Suspect]
     Active Substance: QUININE SULFATE
     Indication: OFF LABEL USE

REACTIONS (1)
  - Tinnitus [Recovered/Resolved]
